FAERS Safety Report 10231314 (Version 1)
Quarter: 2014Q2

REPORT INFORMATION
  Report Type: Spontaneous
  Country: US (occurrence: None)
  Receive Date: 20140506
  Receipt Date: 20140506
  Transmission Date: 20141212
  Serious: Yes (Other)
  Sender: FDA-Public Use
  Company Number: 1301324

PATIENT
  Sex: 0

DRUGS (3)
  1. AVASTATIN (BEVACIZUMAB) [Suspect]
     Indication: NON-SMALL CELL LUNG CANCER
     Dates: start: 20130822, end: 20130911
  2. ALIMTA (PEMETREXED DISODIUM) [Concomitant]
  3. LOVENOX (ENOXAPARIN SODIUM) [Concomitant]

REACTIONS (1)
  - Gastrointestinal perforation [None]
